FAERS Safety Report 8275835-8 (Version None)
Quarter: 2012Q2

REPORT INFORMATION
  Report Type: 
  Country: None (occurrence: None)
  Receive Date: 20120410
  Receipt Date: 20120410
  Transmission Date: 20120825
  Serious: Yes (Hospitalization)
  Sender: FDA-Public Use
  Company Number: None

PATIENT
  Age: 62 Year
  Sex: Female

DRUGS (1)
  1. SIMPONI AUTOINJECTOR 50MG JANSSEN [Suspect]
     Dosage: 50MG EVERY MONTH SQ
     Route: 058
     Dates: start: 20111128, end: 20120306

REACTIONS (1)
  - PULMONARY EMBOLISM [None]
